FAERS Safety Report 24581628 (Version 1)
Quarter: 2024Q4

REPORT INFORMATION
  Report Type: Spontaneous
  Country: CN (occurrence: CN)
  Receive Date: 20241105
  Receipt Date: 20241105
  Transmission Date: 20250114
  Serious: Yes (Hospitalization)
  Sender: NOVARTIS
  Company Number: CN-002147023-NVSC2024CN210957

PATIENT
  Age: 57 Year
  Sex: Female

DRUGS (4)
  1. SACUBITRIL\VALSARTAN [Suspect]
     Active Substance: SACUBITRIL\VALSARTAN
     Indication: Cardiac failure
     Dosage: 150.000 MG, BID
     Route: 048
     Dates: start: 20231222, end: 20241021
  2. FUROSEMIDE [Concomitant]
     Active Substance: FUROSEMIDE
     Indication: Cardiac failure
     Dosage: 20.000 MG, QD
     Route: 048
     Dates: start: 20231222, end: 20241021
  3. SPIRONOLACTONE [Concomitant]
     Active Substance: SPIRONOLACTONE
     Indication: Cardiac failure
     Dosage: 20.000 MG, QD
     Route: 048
     Dates: start: 20231222, end: 20241021
  4. DIGOXIN [Concomitant]
     Active Substance: DIGOXIN
     Indication: Cardiac failure
     Dosage: UNK
     Route: 065

REACTIONS (9)
  - Renal injury [Recovering/Resolving]
  - Blood potassium increased [Recovering/Resolving]
  - Decreased appetite [Unknown]
  - Asthenia [Unknown]
  - Urine output decreased [Unknown]
  - Chest discomfort [Unknown]
  - Diarrhoea [Unknown]
  - Renal failure [Recovering/Resolving]
  - Hyperkalaemia [Recovering/Resolving]

NARRATIVE: CASE EVENT DATE: 20241021
